FAERS Safety Report 19057800 (Version 1)
Quarter: 2021Q1

REPORT INFORMATION
  Report Type: Report from Study
  Country: None (occurrence: IT)
  Receive Date: 20210324
  Receipt Date: 20210324
  Transmission Date: 20210420
  Serious: Yes (Hospitalization)
  Sender: FDA-Public Use
  Company Number: IT-ABBVIE-21P-083-3830470-00

PATIENT
  Age: 68 Year
  Sex: Female

DRUGS (12)
  1. BACTRIM [Concomitant]
     Active Substance: SULFAMETHOXAZOLE\TRIMETHOPRIM
     Indication: PRODUCT USED FOR UNKNOWN INDICATION
  2. SOLDESAM [Concomitant]
     Active Substance: DEXAMETHASONE
     Indication: PRODUCT USED FOR UNKNOWN INDICATION
  3. PANTOPRAZOLE [Concomitant]
     Active Substance: PANTOPRAZOLE
     Indication: PRODUCT USED FOR UNKNOWN INDICATION
  4. VENETOCLAX. [Suspect]
     Active Substance: VENETOCLAX
     Dosage: WEEK 3: FROM DAY 8 TO DAY 14 CYCLE 2
     Route: 048
     Dates: end: 20210310
  5. OBINUTUZUMAB. [Concomitant]
     Active Substance: OBINUTUZUMAB
     Indication: CHRONIC LYMPHOCYTIC LEUKAEMIA TRANSFORMATION
     Route: 042
     Dates: start: 20210208, end: 20210208
  6. OBINUTUZUMAB. [Concomitant]
     Active Substance: OBINUTUZUMAB
     Route: 042
     Dates: end: 20210302
  7. ALLOPURINOL. [Concomitant]
     Active Substance: ALLOPURINOL
     Indication: PRODUCT USED FOR UNKNOWN INDICATION
  8. VENETOCLAX. [Suspect]
     Active Substance: VENETOCLAX
     Dosage: WEEK 2: FROM DAY 1 TO DAY 7 CYCLE
     Route: 048
  9. VENETOCLAX. [Suspect]
     Active Substance: VENETOCLAX
     Indication: CHRONIC LYMPHOCYTIC LEUKAEMIA TRANSFORMATION
     Dosage: WEEK 1: FROM DAY 15 CYCLE 1
     Route: 048
     Dates: start: 20210223
  10. OBINUTUZUMAB. [Concomitant]
     Active Substance: OBINUTUZUMAB
     Dosage: DAY 2
     Route: 042
  11. ZELITREX [Concomitant]
     Active Substance: VALACYCLOVIR HYDROCHLORIDE
     Indication: PRODUCT USED FOR UNKNOWN INDICATION
  12. ATEZOLIZUMAB. [Concomitant]
     Active Substance: ATEZOLIZUMAB
     Indication: CHRONIC LYMPHOCYTIC LEUKAEMIA TRANSFORMATION
     Route: 042
     Dates: start: 20210210, end: 20210302

REACTIONS (1)
  - Pyrexia [Not Recovered/Not Resolved]

NARRATIVE: CASE EVENT DATE: 20210311
